FAERS Safety Report 8554157-1 (Version None)
Quarter: 2012Q3

REPORT INFORMATION
  Report Type: 
  Country: None (occurrence: None)
  Receive Date: 20120731
  Receipt Date: 20120727
  Transmission Date: 20120928
  Serious: Yes (Hospitalization)
  Sender: FDA-Public Use
  Company Number: PHHO2012DE006178

PATIENT
  Sex: Female
  Weight: 57 kg

DRUGS (7)
  1. METHOTREXATE [Suspect]
  2. TASIGNA [Suspect]
     Dosage: 400 MG, BID
     Route: 048
     Dates: start: 20120416
  3. ASPARAGINASE [Suspect]
  4. TASIGNA [Suspect]
     Indication: ACUTE LYMPHOCYTIC LEUKAEMIA
     Dosage: 400 MG, BID
     Route: 048
     Dates: start: 20120214, end: 20120414
  5. CYTARABINE [Suspect]
  6. ACYCLOVIR [Concomitant]
     Indication: PROPHYLAXIS
     Dosage: 800 MG, QD
     Route: 048
     Dates: start: 20120309
  7. COTRIM [Concomitant]
     Indication: PROPHYLAXIS
     Dosage: 960 MG, QW3
     Route: 048
     Dates: start: 20120309

REACTIONS (5)
  - ABDOMINAL PAIN [None]
  - GENERAL PHYSICAL HEALTH DETERIORATION [None]
  - PYREXIA [None]
  - VOMITING [None]
  - MALAISE [None]
